FAERS Safety Report 20830199 (Version 1)
Quarter: 2022Q2

REPORT INFORMATION
  Report Type: Report from Study
  Country: CA (occurrence: CA)
  Receive Date: 20220514
  Receipt Date: 20220514
  Transmission Date: 20220720
  Serious: Yes (Other)
  Sender: FDA-Public Use
  Company Number: CA-NOVARTISPH-NVSC2022CA082907

PATIENT
  Age: 33 Year
  Sex: Male

DRUGS (5)
  1. MONTELUKAST [Suspect]
     Active Substance: MONTELUKAST SODIUM
     Indication: Asthma
     Dosage: 10 MG, QD
     Route: 048
     Dates: start: 202101
  2. PANTOPRAZOLE [Suspect]
     Active Substance: PANTOPRAZOLE
     Indication: Product used for unknown indication
     Dosage: 40 MG, QD
     Route: 065
  3. ADVAIR HFA [Concomitant]
     Active Substance: FLUTICASONE PROPIONATE\SALMETEROL XINAFOATE
     Indication: Asthma
     Dosage: (STRENGTH: 500) 1 DOSAGE FORM, BID
     Route: 055
     Dates: start: 202101
  4. VENTOLIN [Concomitant]
     Active Substance: ALBUTEROL SULFATE
     Indication: Asthma
     Dosage: UNK, PRN
     Route: 055
  5. BEPOTASTINE [Concomitant]
     Active Substance: BEPOTASTINE
     Indication: Product used for unknown indication
     Dosage: 1 UNK, BID (GGT-OCCULAR DROPS)
     Route: 065

REACTIONS (15)
  - Syncope [Unknown]
  - Mean cell volume decreased [Unknown]
  - Blood immunoglobulin E increased [Unknown]
  - Condition aggravated [Unknown]
  - Chest discomfort [Unknown]
  - Dyspnoea [Unknown]
  - Cough [Unknown]
  - Wheezing [Unknown]
  - Upper-airway cough syndrome [Unknown]
  - Eye pruritus [Unknown]
  - Ocular hyperaemia [Unknown]
  - Weight increased [Unknown]
  - Sneezing [Unknown]
  - Nasal congestion [Unknown]
  - Asthma [Unknown]

NARRATIVE: CASE EVENT DATE: 20200501
